FAERS Safety Report 21064687 (Version 1)
Quarter: 2022Q3

REPORT INFORMATION
  Report Type: Spontaneous
  Country: US (occurrence: None)
  Receive Date: 20220710
  Receipt Date: 20220710
  Transmission Date: 20221027
  Serious: Yes (Other)
  Sender: FDA-Public Use
  Company Number: None

PATIENT
  Age: 40 Year
  Sex: Female
  Weight: 112.5 kg

DRUGS (1)
  1. ALBA HAWAIIANDRY SUNSCREEN SPF15 [Suspect]
     Active Substance: AVOBENZONE\HOMOSALATE\OCTISALATE\OCTOCRYLENE
     Indication: Prophylaxis against solar radiation
     Dates: start: 20220627, end: 20220710

REACTIONS (1)
  - Sunburn [None]

NARRATIVE: CASE EVENT DATE: 20220708
